FAERS Safety Report 8602355-0 (Version None)
Quarter: 2012Q3

REPORT INFORMATION
  Report Type: 
  Country: None (occurrence: None)
  Receive Date: 20120817
  Receipt Date: 20120814
  Transmission Date: 20120928
  Serious: Yes (Other)
  Sender: FDA-Public Use
  Company Number: CN-ROCHE-1102536

PATIENT
  Age: 40 Year
  Sex: Female

DRUGS (2)
  1. ORLISTAT [Suspect]
     Indication: PRODUCT USED FOR UNKNOWN INDICATION
     Route: 048
  2. ORLISTAT [Suspect]
     Route: 048

REACTIONS (1)
  - HYPERTENSION [None]
